FAERS Safety Report 16347423 (Version 1)
Quarter: 2019Q2

REPORT INFORMATION
  Report Type: Spontaneous
  Country: US (occurrence: US)
  Receive Date: 20190417
  Receipt Date: 20190417
  Transmission Date: 20190711
  Serious: No
  Sender: FDA-Public Use
  Company Number: None

PATIENT
  Age: 82 Year
  Sex: Female

DRUGS (3)
  1. IBUPROFEN. [Concomitant]
     Active Substance: IBUPROFEN
  2. FORTEO [Suspect]
     Active Substance: TERIPARATIDE
     Dates: start: 201903
  3. PRANDIN [Concomitant]
     Active Substance: REPAGLINIDE

REACTIONS (2)
  - Chills [None]
  - Peripheral coldness [None]

NARRATIVE: CASE EVENT DATE: 20190324
